FAERS Safety Report 7505860-3 (Version None)
Quarter: 2011Q2

REPORT INFORMATION
  Report Type: 
  Country: None (occurrence: None)
  Receive Date: 20110526
  Receipt Date: 20110512
  Transmission Date: 20111010
  Serious: Yes (Hospitalization)
  Sender: FDA-Public Use
  Company Number: US-BAYER-201015117NA

PATIENT
  Age: 37 Year
  Sex: Female
  Weight: 149.21 kg

DRUGS (3)
  1. METOPROLOL TARTRATE [Concomitant]
     Indication: SINUS TACHYCARDIA
     Dosage: 50 MG, QD
     Dates: start: 20050101
  2. YASMIN [Suspect]
     Route: 048
  3. YAZ [Suspect]
     Indication: CONTRACEPTION
     Dosage: UNK
     Route: 048
     Dates: start: 20030101, end: 20050101

REACTIONS (5)
  - EMOTIONAL DISTRESS [None]
  - ANXIETY [None]
  - ANXIETY DISORDER [None]
  - PULMONARY EMBOLISM [None]
  - DEPRESSION [None]
